FAERS Safety Report 6533667-2 (Version None)
Quarter: 2010Q1

REPORT INFORMATION
  Report Type: 
  Country: None (occurrence: None)
  Receive Date: 20100107
  Receipt Date: 20100107
  Transmission Date: 20100710
  Serious: Yes (Other)
  Sender: FDA-Public Use
  Company Number: None

PATIENT
  Age: 63 Year
  Sex: Female
  Weight: 71.6683 kg

DRUGS (2)
  1. CIPROFLOXACIN [Suspect]
     Indication: DIVERTICULITIS
     Dosage: 2 TABS           TWICE DAILY PO
     Route: 049
     Dates: start: 20091220, end: 20091226
  2. CIPROFLOXACIN [Suspect]
     Indication: NEPHROLITHIASIS
     Dosage: 2 TABS           TWICE DAILY PO
     Route: 049
     Dates: start: 20091220, end: 20091226

REACTIONS (13)
  - ARTHRALGIA [None]
  - FAECES DISCOLOURED [None]
  - FREQUENT BOWEL MOVEMENTS [None]
  - HYPOAESTHESIA [None]
  - MUSCLE SPASMS [None]
  - PAIN IN EXTREMITY [None]
  - PARAESTHESIA [None]
  - POOR QUALITY SLEEP [None]
  - STOMATITIS [None]
  - VAGINAL SWELLING [None]
  - VULVOVAGINAL DISCOMFORT [None]
  - VULVOVAGINAL PAIN [None]
  - VULVOVAGINAL PRURITUS [None]
